FAERS Safety Report 5151541-3 (Version None)
Quarter: 2006Q4

REPORT INFORMATION
  Report Type: 
  Country: None (occurrence: None)
  Receive Date: 20061115
  Receipt Date: 20061102
  Transmission Date: 20070319
  Serious: Yes (Hospitalization, Disabling, Other)
  Sender: FDA-Public Use
  Company Number: CA-ELI_LILLY_AND_COMPANY-CA200611001723

PATIENT
  Age: 76 Year
  Sex: Female

DRUGS (9)
  1. FORTEO [Suspect]
     Indication: OSTEOPOROSIS
     Dosage: 20 UG, DAILY (1/D)
     Dates: start: 20050921, end: 20060901
  2. FORTEO [Suspect]
     Dosage: 20 UG, DAILY (1/D)
     Dates: start: 20060101
  3. LAMOTRIGINE [Concomitant]
     Dates: start: 20060901
  4. ACETYLSALICYLIC ACID SRT [Concomitant]
     Dosage: 325 MG, UNK
  5. GLUCOSAMINE [Concomitant]
  6. CHONDROITIN SULFATE [Concomitant]
  7. CALCIUM [Concomitant]
  8. VITAMIN D [Concomitant]
  9. DILANTIN [Concomitant]
     Dates: end: 20060901

REACTIONS (4)
  - FALL [None]
  - HEAD INJURY [None]
  - MOBILITY DECREASED [None]
  - SUBDURAL HAEMATOMA [None]
